FAERS Safety Report 7817978-6 (Version None)
Quarter: 2011Q4

REPORT INFORMATION
  Report Type: 
  Country: None (occurrence: None)
  Receive Date: 20111017
  Receipt Date: 20110802
  Transmission Date: 20120403
  Serious: Yes (Other)
  Sender: FDA-Public Use
  Company Number: IN-GLAXOSMITHKLINE-B0755455A

PATIENT
  Age: 52 Year

DRUGS (1)
  1. ARIXTRA [Suspect]
     Indication: POSTOPERATIVE CARE
     Route: 042

REACTIONS (1)
  - HAEMORRHAGE [None]
